FAERS Safety Report 9650447 (Version 2)
Quarter: 2013Q4

REPORT INFORMATION
  Report Type: Report from Study
  Country: LB (occurrence: LB)
  Receive Date: 20131028
  Receipt Date: 20131031
  Transmission Date: 20140711
  Serious: Yes (Life-Threatening, Hospitalization)
  Sender: FDA-Public Use
  Company Number: LB-ROCHE-1295560

PATIENT
  Age: 44 Year
  Sex: Female
  Weight: 94 kg

DRUGS (5)
  1. TOCILIZUMAB [Suspect]
     Indication: RHEUMATOID ARTHRITIS
     Dosage: RECEIVED 2 CYCLE
     Route: 042
     Dates: start: 20130830
  2. ELTROXIN [Concomitant]
     Indication: HYPOTHYROIDISM
     Route: 048
     Dates: start: 199102
  3. GYNO-TARDYFERON (UKRAINE) [Concomitant]
     Indication: ANAEMIA
     Dosage: 1 TABLET
     Route: 048
     Dates: start: 201306
  4. TRYPTIZOL [Concomitant]
     Indication: DIZZINESS
     Route: 048
     Dates: start: 201306
  5. OLFEN [Concomitant]
     Indication: RHEUMATOID ARTHRITIS
     Route: 048
     Dates: start: 20130807

REACTIONS (1)
  - Abdominal strangulated hernia [Recovered/Resolved]
